FAERS Safety Report 11190638 (Version 2)
Quarter: 2015Q2

REPORT INFORMATION
  Report Type: Spontaneous
  Country: JP (occurrence: JP)
  Receive Date: 20150615
  Receipt Date: 20150625
  Transmission Date: 20150821
  Serious: No
  Sender: FDA-Public Use
  Company Number: PHJP2015JP008968

PATIENT
  Sex: Female

DRUGS (1)
  1. FEMARA [Suspect]
     Active Substance: LETROZOLE
     Indication: BREAST CANCER
     Dosage: UNK
     Route: 048
     Dates: start: 2013

REACTIONS (3)
  - Visual acuity reduced [Recovered/Resolved]
  - Eye discharge [Recovered/Resolved]
  - Tinnitus [Recovered/Resolved]
